FAERS Safety Report 21842206 (Version 1)
Quarter: 2023Q1

REPORT INFORMATION
  Report Type: Spontaneous
  Country: CA (occurrence: CA)
  Receive Date: 20230110
  Receipt Date: 20230110
  Transmission Date: 20230417
  Serious: Yes (Death, Life-Threatening, Hospitalization)
  Sender: FDA-Public Use
  Company Number: CA-STRIDES ARCOLAB LIMITED-2023SP000434

PATIENT
  Age: 50 Year
  Sex: Female

DRUGS (11)
  1. PREDNISOLONE [Suspect]
     Active Substance: PREDNISOLONE
     Indication: Paraneoplastic dermatomyositis
     Dosage: UNK
     Route: 048
  2. CARBOPLATIN [Suspect]
     Active Substance: CARBOPLATIN
     Indication: Paraneoplastic dermatomyositis
     Dosage: UNK, CYCLICAL (AUC 5; TOTAL 3 CYCLES)
     Route: 065
  3. METHOTREXATE [Suspect]
     Active Substance: METHOTREXATE
     Indication: Paraneoplastic dermatomyositis
     Dosage: UNK
     Route: 065
  4. METHYLPREDNISOLONE [Suspect]
     Active Substance: METHYLPREDNISOLONE
     Indication: Paraneoplastic dermatomyositis
     Dosage: UNK, (PULSED HIGH-DOSE)
     Route: 065
  5. PACLITAXEL [Suspect]
     Active Substance: PACLITAXEL
     Indication: Paraneoplastic dermatomyositis
     Dosage: 200 MILLIGRAM/SQ. METER, CYCLICAL
     Route: 065
  6. PACLITAXEL [Suspect]
     Active Substance: PACLITAXEL
     Dosage: UNK, CYCLICAL (PACLITAXEL DOSAGE WAS ADJUSTED DUE TO DRUG-DRUG PHARMACOKINETIC INTERACTION: 3 CYCLES
     Route: 065
  7. PHENYTOIN [Concomitant]
     Active Substance: PHENYTOIN
     Indication: Partial seizures
     Dosage: UNK
     Route: 065
  8. PHENYTOIN [Concomitant]
     Active Substance: PHENYTOIN
     Dosage: UNK, (LATER THERAPY WAS MODIFIED AS DRUG-INDUCED ALLERGY WAS PRESUMED)
     Route: 065
  9. CARBAMAZEPINE [Concomitant]
     Active Substance: CARBAMAZEPINE
     Indication: Partial seizures
     Dosage: UNK
     Route: 065
  10. CARBAMAZEPINE [Concomitant]
     Active Substance: CARBAMAZEPINE
     Dosage: UNK, (LATER THERAPY WAS MODIFIED AS DRUG-INDUCED ALLERGY WAS PRESUMED)
     Route: 065
  11. CEFAZOLIN [Concomitant]
     Active Substance: CEFAZOLIN
     Indication: Peritonitis bacterial
     Dosage: UNK
     Route: 065

REACTIONS (3)
  - Drug ineffective [Fatal]
  - Pneumonia pseudomonal [Unknown]
  - Off label use [Unknown]
